FAERS Safety Report 4606992-X (Version None)
Quarter: 2005Q1

REPORT INFORMATION
  Report Type: 
  Country: None (occurrence: None)
  Receive Date: 20050309
  Receipt Date: 20050224
  Transmission Date: 20050727
  Serious: Yes (Hospitalization)
  Sender: FDA-Public Use
  Company Number: US014736

PATIENT
  Sex: Female

DRUGS (2)
  1. PROVIGIL [Suspect]
     Indication: HYPERSOMNIA
     Dosage: ORAL
     Route: 048
  2. PROVIGIL [Suspect]
     Indication: HYPERSOMNIA
     Dosage: 600 MG QD ORAL
     Route: 048

REACTIONS (1)
  - TRANSIENT ISCHAEMIC ATTACK [None]
